FAERS Safety Report 7365784-1 (Version None)
Quarter: 2011Q1

REPORT INFORMATION
  Report Type: 
  Country: None (occurrence: None)
  Receive Date: 20110309
  Receipt Date: 20110304
  Transmission Date: 20110831
  Serious: Yes (Other)
  Sender: FDA-Public Use
  Company Number: 2010SP015948

PATIENT
  Age: 66 Year
  Sex: Male

DRUGS (5)
  1. MIRTAZAPINE [Suspect]
     Indication: DEPRESSION
     Dosage: 15 MG, QD, PO
     Route: 048
     Dates: start: 20100304, end: 20100309
  2. CALCIUM CARBONATE [Concomitant]
  3. CHINESE HERBAL MEDICINE [Concomitant]
  4. OXATOMIDE [Concomitant]
  5. ETHYL ICOSAPENTATE [Concomitant]

REACTIONS (2)
  - PLATELET COUNT DECREASED [None]
  - HAEMODIALYSIS [None]
